FAERS Safety Report 9371733 (Version 1)
Quarter: 2013Q2

REPORT INFORMATION
  Report Type: Spontaneous
  Country: US (occurrence: US)
  Receive Date: 20130627
  Receipt Date: 20130627
  Transmission Date: 20140414
  Serious: Yes (Other)
  Sender: FDA-Public Use
  Company Number: US-US-EMD SERONO, INC.-7010569

PATIENT
  Sex: Female
  Weight: 77 kg

DRUGS (3)
  1. REBIF [Suspect]
     Indication: MULTIPLE SCLEROSIS
     Dates: start: 20070917, end: 20081103
  2. REBIF [Suspect]
     Dates: start: 20100210, end: 20100223
  3. ZOLOFT [Concomitant]
     Indication: DEPRESSION
     Dates: start: 2004

REACTIONS (2)
  - Abortion spontaneous [Recovered/Resolved]
  - Foetal exposure during pregnancy [Unknown]
